FAERS Safety Report 9177457 (Version 1)
Quarter: 2013Q1

REPORT INFORMATION
  Report Type: Spontaneous
  Country: US (occurrence: US)
  Receive Date: 20130321
  Receipt Date: 20130321
  Transmission Date: 20140127
  Serious: Yes (Other)
  Sender: FDA-Public Use
  Company Number: PHEH2013US006205

PATIENT
  Sex: Female

DRUGS (2)
  1. EXELON PATCH [Suspect]
     Indication: DEMENTIA
     Dosage: 9.5 MG, DAILY
     Route: 062
  2. CARBIDOPA [Concomitant]
     Indication: HYPERTENSION
     Dosage: UNK UKN, UNK

REACTIONS (11)
  - Blindness [Unknown]
  - Pelvic fracture [Unknown]
  - Fall [Unknown]
  - Memory impairment [Unknown]
  - Hypersomnia [Unknown]
  - Inappropriate schedule of drug administration [Unknown]
  - Incorrect dose administered [Unknown]
  - Gait disturbance [Unknown]
  - Weight decreased [Unknown]
  - Tremor [Unknown]
  - Overdose [Unknown]
